FAERS Safety Report 17249926 (Version 1)
Quarter: 2020Q1

REPORT INFORMATION
  Report Type: Report from Study
  Country: None (occurrence: US)
  Receive Date: 20200109
  Receipt Date: 20200109
  Transmission Date: 20200409
  Serious: Yes (Hospitalization, Other)
  Sender: FDA-Public Use
  Company Number: US-ABBVIE-19K-163-2926441-00

PATIENT
  Sex: Female

DRUGS (1)
  1. HUMIRA [Suspect]
     Active Substance: ADALIMUMAB
     Indication: RHEUMATOID ARTHRITIS
     Dosage: CITRATE FREE
     Route: 058

REACTIONS (6)
  - Joint swelling [Recovered/Resolved]
  - Cardiac murmur [Unknown]
  - Arthralgia [Recovered/Resolved]
  - Dyspnoea [Unknown]
  - Cardiac valve disease [Unknown]
  - Mobility decreased [Recovered/Resolved]
